FAERS Safety Report 8007467-0 (Version None)
Quarter: 2011Q4

REPORT INFORMATION
  Report Type: 
  Country: None (occurrence: None)
  Receive Date: 20111227
  Receipt Date: 20111215
  Transmission Date: 20120403
  Serious: Yes (Hospitalization)
  Sender: FDA-Public Use
  Company Number: FR-MILLENNIUM PHARMACEUTICALS, INC.-2011-03341

PATIENT

DRUGS (8)
  1. DEXAMETHASONE [Suspect]
     Indication: MULTIPLE MYELOMA
     Dosage: 20 MG, CYCLIC
     Dates: start: 20110207, end: 20110401
  2. LYRICA [Concomitant]
     Dosage: 350 MG, UNK
  3. CLAMOXYL                           /00249601/ [Concomitant]
     Indication: PROPHYLAXIS
     Dosage: 1 G, UNK
  4. BACTRIM [Concomitant]
     Indication: PROPHYLAXIS
  5. THIOCOLCHICOSIDE [Concomitant]
  6. VELCADE [Suspect]
     Indication: MULTIPLE MYELOMA
     Dosage: 1.3 MG/M2, CYCLIC
     Dates: start: 20110207, end: 20110331
  7. MYOLASTAN [Concomitant]
  8. REVLIMID [Suspect]
     Indication: MULTIPLE MYELOMA
     Dosage: 25 MG, CYCLIC
     Dates: start: 20110207, end: 20110403

REACTIONS (2)
  - NERVOUS SYSTEM DISORDER [None]
  - CONFUSIONAL STATE [None]
